FAERS Safety Report 19243657 (Version 1)
Quarter: 2021Q2

REPORT INFORMATION
  Report Type: Report from Study
  Country: ZA (occurrence: ZA)
  Receive Date: 20210511
  Receipt Date: 20210511
  Transmission Date: 20210717
  Serious: Yes (Death)
  Sender: FDA-Public Use
  Company Number: ZA-ASTRAZENECA-2021A407041

PATIENT
  Age: 74 Year
  Sex: Male

DRUGS (9)
  1. BYETTA [Concomitant]
     Active Substance: EXENATIDE
     Dosage: 10.0UG UNKNOWN
  2. MONICOR SR [Concomitant]
     Active Substance: ISOSORBIDE MONONITRATE
     Dosage: 60.0MG UNKNOWN
     Route: 048
  3. VICTOZA [Concomitant]
     Active Substance: LIRAGLUTIDE
     Dosage: 6.0MG UNKNOWN
  4. CARLOC [Concomitant]
     Active Substance: CARVEDILOL
     Dosage: 12.5MG UNKNOWN
  5. MYOPRIN [Concomitant]
     Active Substance: ASPIRIN
     Dosage: 100.0MG UNKNOWN
  6. MYLAN FUROSEMIDE [Concomitant]
     Active Substance: FUROSEMIDE
     Dosage: 40.0MG UNKNOWN
  7. TAREG [Concomitant]
     Active Substance: VALSARTAN
     Dosage: 160.0MG UNKNOWN
  8. FORXIGA [Suspect]
     Active Substance: DAPAGLIFLOZIN
     Indication: DIABETES MELLITUS
     Route: 048
  9. HUMALOG MIX [Concomitant]
     Active Substance: INSULIN LISPRO
     Dosage: 100.0IU UNKNOWN

REACTIONS (1)
  - Death [Fatal]

NARRATIVE: CASE EVENT DATE: 202104
